FAERS Safety Report 7327129-2 (Version None)
Quarter: 2011Q1

REPORT INFORMATION
  Report Type: 
  Country: None (occurrence: None)
  Receive Date: 20110302
  Receipt Date: 20110225
  Transmission Date: 20110831
  Serious: Yes (Hospitalization, Other)
  Sender: FDA-Public Use
  Company Number: US-ABBOTT-11P-163-0708055-00

PATIENT

DRUGS (11)
  1. LIPITOR [Concomitant]
     Indication: BLOOD CHOLESTEROL INCREASED
  2. ULTRAM [Concomitant]
     Indication: PAIN MANAGEMENT
     Dosage: 3 OR 4 TABLETS DAILY
     Dates: end: 20101201
  3. TRICOR [Suspect]
     Indication: BLOOD CHOLESTEROL INCREASED
  4. NIASPAN [Concomitant]
     Indication: BLOOD TRIGLYCERIDES INCREASED
     Dosage: EVERY NIGHT
  5. LOVAZA [Concomitant]
     Indication: BLOOD CHOLESTEROL INCREASED
  6. TRICOR [Suspect]
     Indication: BLOOD TRIGLYCERIDES INCREASED
     Dosage: EVERY NIGHT
     Dates: end: 20110224
  7. CELEXA [Concomitant]
  8. NIASPAN [Concomitant]
     Indication: BLOOD CHOLESTEROL INCREASED
  9. LOVAZA [Concomitant]
     Indication: BLOOD TRIGLYCERIDES INCREASED
     Dates: start: 20090101
  10. LIPITOR [Concomitant]
     Indication: BLOOD TRIGLYCERIDES INCREASED
     Dates: end: 20110222
  11. CELEXA [Concomitant]
     Indication: BREAST CANCER
     Dates: start: 20030101

REACTIONS (14)
  - BLOOD MAGNESIUM DECREASED [None]
  - DEVICE FAILURE [None]
  - DEHYDRATION [None]
  - DEPRESSION [None]
  - RENAL DISORDER [None]
  - HAEMORRHAGE [None]
  - MUSCLE SPASMS [None]
  - ANAEMIA [None]
  - BLOOD CREATININE INCREASED [None]
  - BRONCHITIS [None]
  - OSTEITIS [None]
  - CONVULSION [None]
  - DIABETES MELLITUS INADEQUATE CONTROL [None]
  - ADVERSE REACTION [None]
